FAERS Safety Report 9018225 (Version 1)
Quarter: 2013Q1

REPORT INFORMATION
  Report Type: Spontaneous
  Country: US (occurrence: None)
  Receive Date: 20130111
  Receipt Date: 20130111
  Transmission Date: 20140127
  Serious: Yes (Other)
  Sender: FDA-Public Use
  Company Number: None

PATIENT
  Sex: Female
  Weight: 52.16 kg

DRUGS (1)
  1. CYMBALTA 30MG NOT KNOWN [Suspect]
     Indication: PAIN
     Dosage: DAILY ONCE A DAY PO
     Route: 048
     Dates: start: 20100101, end: 20121231

REACTIONS (1)
  - Hallucination, auditory [None]
